FAERS Safety Report 9869390 (Version 1)
Quarter: 2014Q1

REPORT INFORMATION
  Report Type: Spontaneous
  Country: US (occurrence: US)
  Receive Date: 20140205
  Receipt Date: 20140205
  Transmission Date: 20141002
  Serious: Yes (Hospitalization, Other)
  Sender: FDA-Public Use
  Company Number: US-BAYER-2014-017647

PATIENT
  Age: 41 Year
  Sex: Female
  Weight: 83.45 kg

DRUGS (7)
  1. YAZ [Suspect]
  2. TORADOL [Concomitant]
     Indication: CONTRACEPTIVE IMPLANT
     Dosage: 60 MG, UNK
     Route: 030
     Dates: start: 20091116
  3. VALIUM [Concomitant]
     Indication: CONTRACEPTIVE IMPLANT
     Dosage: 10 MG, UNK
     Route: 048
     Dates: start: 20091116
  4. CYTOTEC [Concomitant]
     Indication: CONTRACEPTIVE IMPLANT
     Dosage: 200 MCG
     Route: 048
     Dates: start: 20091116
  5. LOESTRIN [Concomitant]
  6. VICODIN [Concomitant]
  7. PREDNISONE [Concomitant]

REACTIONS (2)
  - Pulmonary embolism [None]
  - Deep vein thrombosis [None]
